FAERS Safety Report 17483851 (Version 2)
Quarter: 2020Q1

REPORT INFORMATION
  Report Type: Spontaneous
  Country: US (occurrence: US)
  Receive Date: 20200302
  Receipt Date: 20200309
  Transmission Date: 20200409
  Serious: No
  Sender: FDA-Public Use
  Company Number: US-PFIZER INC-2017283802

PATIENT
  Age: 11 Year
  Sex: Male
  Weight: 26.4 kg

DRUGS (1)
  1. BENEFIX [Suspect]
     Active Substance: COAGULATION FACTOR IX RECOMBINANT HUMAN\ISOPROPYL ALCOHOL
     Indication: FACTOR IX DEFICIENCY
     Dosage: 3200 IU, AS NEEDED (INJECT 3200 UNITS AS NEEDED FOR OTHER (BLEEDING) FOR MAJOR BLEED/1600 FOR MINOR)
     Route: 042

REACTIONS (1)
  - No adverse event [Unknown]
